FAERS Safety Report 10031526 (Version 2)
Quarter: 2014Q1

REPORT INFORMATION
  Report Type: Spontaneous
  Country: ES (occurrence: ES)
  Receive Date: 20140324
  Receipt Date: 20140324
  Transmission Date: 20141002
  Serious: Yes (Other)
  Sender: FDA-Public Use
  Company Number: ES-PFIZER INC-2014069078

PATIENT
  Age: 33 Year
  Sex: Female

DRUGS (4)
  1. DOXORUBICIN HCL [Suspect]
     Indication: HODGKIN^S DISEASE
     Dosage: FOUR CYCLES
  2. BLEOMYCIN [Suspect]
     Indication: HODGKIN^S DISEASE
     Dosage: FOUR CYCLES
  3. VINBLASTINE [Suspect]
     Indication: HODGKIN^S DISEASE
     Dosage: FOUR CYCLES
  4. DACARBAZINE [Suspect]
     Indication: HODGKIN^S DISEASE
     Dosage: 4 CYCLES

REACTIONS (1)
  - Sarcoidosis [Unknown]
